FAERS Safety Report 10210912 (Version 1)
Quarter: 2014Q2

REPORT INFORMATION
  Report Type: Spontaneous
  Country: US (occurrence: US)
  Receive Date: 20140602
  Receipt Date: 20140602
  Transmission Date: 20141212
  Serious: Yes (Hospitalization)
  Sender: FDA-Public Use
  Company Number: US-PFIZER INC-2014150025

PATIENT
  Age: 40 Year
  Sex: Female
  Weight: 108.84 kg

DRUGS (2)
  1. LYRICA [Suspect]
     Indication: MULTIPLE SCLEROSIS
     Dosage: 150 MG, 2X/DAY
     Route: 048
     Dates: start: 2011
  2. LYRICA [Suspect]
     Indication: DEPRESSION

REACTIONS (2)
  - Stress [Unknown]
  - Insomnia [Unknown]
